FAERS Safety Report 10190902 (Version 1)
Quarter: 2014Q2

REPORT INFORMATION
  Report Type: Spontaneous
  Country: US (occurrence: None)
  Receive Date: 20140521
  Receipt Date: 20140521
  Transmission Date: 20141212
  Serious: No
  Sender: FDA-Public Use
  Company Number: None

PATIENT
  Age: 67 Year
  Sex: Female
  Weight: 65.77 kg

DRUGS (11)
  1. AMPHETA/DEXTRO [Suspect]
     Indication: ATTENTION DEFICIT/HYPERACTIVITY DISORDER
     Dosage: 1 PER DAY NOON MOUTH
     Route: 048
     Dates: start: 20140324, end: 20140427
  2. AMPHETA/DEXTRO [Suspect]
     Indication: DEPRESSION
     Dosage: 1 PER DAY NOON MOUTH
     Route: 048
     Dates: start: 20140324, end: 20140427
  3. AMPHETA/DEXTRO [Suspect]
     Indication: NARCOLEPSY
     Dosage: 1 PER DAY NOON MOUTH
     Route: 048
     Dates: start: 20140324, end: 20140427
  4. LEVOTHYROXINE [Concomitant]
  5. LEXAPRO [Concomitant]
  6. ESTRADIOL [Concomitant]
  7. PROMETRIUM [Concomitant]
  8. TRIAMTERENE [Concomitant]
  9. GLUCOSAMINE [Concomitant]
  10. MULTIVITAMINS [Concomitant]
  11. VITAMIN D-3 [Concomitant]

REACTIONS (5)
  - Depression [None]
  - Headache [None]
  - Dizziness [None]
  - Mental impairment [None]
  - Product substitution issue [None]
